FAERS Safety Report 7116054-8 (Version None)
Quarter: 2010Q4

REPORT INFORMATION
  Report Type: 
  Country: None (occurrence: None)
  Receive Date: 20101122
  Receipt Date: 20101115
  Transmission Date: 20110411
  Serious: Yes (Other)
  Sender: FDA-Public Use
  Company Number: US-ASTRAZENECA-2010SE54422

PATIENT
  Age: 16 Year
  Sex: Female

DRUGS (15)
  1. QUETIAPINE [Suspect]
     Indication: INSOMNIA
     Route: 048
     Dates: start: 20070925
  2. QUETIAPINE [Suspect]
     Indication: MANIA
     Route: 048
     Dates: start: 20070925
  3. QUETIAPINE [Suspect]
     Route: 048
     Dates: start: 20080613
  4. QUETIAPINE [Suspect]
     Route: 048
     Dates: start: 20080613
  5. QUETIAPINE [Suspect]
     Route: 048
     Dates: start: 20080707
  6. QUETIAPINE [Suspect]
     Route: 048
     Dates: start: 20080707
  7. QUETIAPINE [Suspect]
     Route: 048
     Dates: start: 20080710
  8. QUETIAPINE [Suspect]
     Route: 048
     Dates: start: 20080710
  9. QUETIAPINE [Suspect]
     Route: 048
     Dates: start: 20080712
  10. QUETIAPINE [Suspect]
     Route: 048
     Dates: start: 20080712
  11. QUETIAPINE [Suspect]
     Route: 048
     Dates: start: 20080714, end: 20080714
  12. QUETIAPINE [Suspect]
     Route: 048
     Dates: start: 20080714, end: 20080714
  13. SERTRALINE HYDROCHLORIDE [Concomitant]
     Dates: start: 20070925
  14. BUSPIRONE HCL [Concomitant]
     Indication: ANXIETY
     Dates: start: 20070925
  15. VALPROIC ACID [Concomitant]
     Dates: start: 20080613, end: 20080707

REACTIONS (1)
  - THROMBOCYTOPENIA [None]
